FAERS Safety Report 17802445 (Version 1)
Quarter: 2020Q2

REPORT INFORMATION
  Report Type: Spontaneous
  Country: US (occurrence: US)
  Receive Date: 20200519
  Receipt Date: 20200519
  Transmission Date: 20200714
  Serious: Yes (Other)
  Sender: FDA-Public Use
  Company Number: US-MYLANLABS-2020M1049081

PATIENT
  Age: 56 Year
  Sex: Male

DRUGS (2)
  1. KETAMINE [Suspect]
     Active Substance: KETAMINE
     Indication: DEPRESSION
     Dosage: 60 MILLIGRAM EVERY OTHER DAY FOR 2 YEARS
     Route: 045
  2. KETAMINE [Suspect]
     Active Substance: KETAMINE
     Indication: DEPRESSION
     Dosage: 1 MILLIGRAM/KILOGRAM SINGLE DOSE
     Route: 042

REACTIONS (1)
  - Drug ineffective [Unknown]
